FAERS Safety Report 21278403 (Version 1)
Quarter: 2022Q3

REPORT INFORMATION
  Report Type: Spontaneous
  Country: US (occurrence: US)
  Receive Date: 20220831
  Receipt Date: 20220831
  Transmission Date: 20221027
  Serious: No
  Sender: FDA-Public Use
  Company Number: US-ELI_LILLY_AND_COMPANY-US202208014829

PATIENT
  Sex: Female

DRUGS (3)
  1. HUMALOG MIX50/50 [Suspect]
     Active Substance: INSULIN LISPRO
     Indication: Type 2 diabetes mellitus
     Dosage: 30 U, BID
     Route: 058
  2. HUMALOG MIX50/50 [Suspect]
     Active Substance: INSULIN LISPRO
     Dosage: 30 U, BID
     Route: 058
  3. LEVEMIR [Concomitant]
     Active Substance: INSULIN DETEMIR
     Indication: Type 2 diabetes mellitus
     Dosage: 40 U, EACH MORNING
     Route: 065

REACTIONS (1)
  - Glycosylated haemoglobin increased [Unknown]
